FAERS Safety Report 9620401 (Version 1)
Quarter: 2013Q4

REPORT INFORMATION
  Report Type: Spontaneous
  Country: US (occurrence: US)
  Receive Date: 20131015
  Receipt Date: 20131015
  Transmission Date: 20140711
  Serious: No
  Sender: FDA-Public Use
  Company Number: -SAAVPROD-BMS16982050

PATIENT
  Age: 89 Year
  Sex: Female
  Weight: 58.96 kg

DRUGS (1)
  1. AVALIDE TABS 150MG/12.5MG [Suspect]
     Indication: HYPERTENSION
     Dosage: 1DF: 150/12.5 MG
     Route: 048

REACTIONS (2)
  - Tooth fracture [Unknown]
  - Product physical issue [Unknown]
